FAERS Safety Report 4291493-1 (Version None)
Quarter: 2004Q1

REPORT INFORMATION
  Report Type: 
  Country: None (occurrence: None)
  Receive Date: 20040211
  Receipt Date: 20030313
  Transmission Date: 20041129
  Serious: No
  Sender: FDA-Public Use
  Company Number: US-BRISTOL-MYERS SQUIBB COMPANY-12211892

PATIENT
  Age: 2 Year
  Sex: Male
  Weight: 13 kg

DRUGS (2)
  1. CEFZIL [Suspect]
     Indication: TONSILLITIS
     Route: 048
     Dates: start: 20030309, end: 20030310
  2. CEFZIL [Suspect]
     Indication: EAR INFECTION
     Route: 048
     Dates: start: 20030309, end: 20030310

REACTIONS (1)
  - VOMITING [None]
